FAERS Safety Report 9708680 (Version 7)
Quarter: 2016Q1

REPORT INFORMATION
  Report Type: Spontaneous
  Country: US (occurrence: US)
  Receive Date: 20131125
  Receipt Date: 20160217
  Transmission Date: 20160526
  Serious: Yes (Hospitalization, Other)
  Sender: FDA-Public Use
  Company Number: US-GLAXOSMITHKLINE-A0741660A

PATIENT
  Sex: Female

DRUGS (5)
  1. IMITREX [Suspect]
     Active Substance: SUMATRIPTAN SUCCINATE
     Indication: MIGRAINE
     Dosage: 6 MG/0.5 ML
     Route: 058
     Dates: start: 1989
  2. IMITREX [Suspect]
     Active Substance: SUMATRIPTAN SUCCINATE
     Indication: HEADACHE
     Dosage: UNK
     Dates: start: 1989
  3. TOPAMAX [Concomitant]
     Active Substance: TOPIRAMATE
  4. IMITREX [Suspect]
     Active Substance: SUMATRIPTAN SUCCINATE
     Dosage: UNK
     Dates: start: 1991
  5. SAVELLA [Concomitant]
     Active Substance: MILNACIPRAN HYDROCHLORIDE

REACTIONS (22)
  - Paraesthesia [Unknown]
  - Dysuria [Unknown]
  - Emergency care examination [Unknown]
  - Pain [Unknown]
  - Eye pain [Unknown]
  - Injection site pruritus [Unknown]
  - Malaise [Recovering/Resolving]
  - Abasia [Recovering/Resolving]
  - Injection site pain [Unknown]
  - Nausea [Unknown]
  - Photophobia [Unknown]
  - Hospitalisation [Unknown]
  - Nasal discomfort [Unknown]
  - Headache [Unknown]
  - Migraine [Unknown]
  - Drug ineffective [Not Recovered/Not Resolved]
  - Fall [Recovering/Resolving]
  - Burning sensation [Unknown]
  - Renal disorder [Unknown]
  - Influenza [Unknown]
  - Back pain [Recovering/Resolving]
  - Cardiac disorder [Unknown]

NARRATIVE: CASE EVENT DATE: 1989
